FAERS Safety Report 7962058-2 (Version None)
Quarter: 2011Q4

REPORT INFORMATION
  Report Type: 
  Country: None (occurrence: None)
  Receive Date: 20111207
  Receipt Date: 20111206
  Transmission Date: 20120403
  Serious: Yes (Other)
  Sender: FDA-Public Use
  Company Number: CH-PFIZER INC-2011290215

PATIENT
  Age: 70 Year
  Sex: Female

DRUGS (5)
  1. TOVIAZ [Suspect]
     Indication: HYPERTONIC BLADDER
     Dosage: 4 MG, 1X/DAY
     Dates: start: 20091201
  2. PRAVASTATIN [Concomitant]
  3. LEVOTHYROXINE SODIUM [Concomitant]
  4. SYSTEN [Concomitant]
  5. METOPROLOL SUCCINATE [Concomitant]
     Dosage: 50 MG, UNK

REACTIONS (3)
  - HYPERTENSION [None]
  - BRADYCARDIA [None]
  - THYROID DISORDER [None]
